FAERS Safety Report 18764361 (Version 1)
Quarter: 2021Q1

REPORT INFORMATION
  Report Type: Spontaneous
  Country: US (occurrence: US)
  Receive Date: 20210120
  Receipt Date: 20210120
  Transmission Date: 20210419
  Serious: No
  Sender: FDA-Public Use
  Company Number: US-PFIZER INC-2021035827

PATIENT
  Age: 69 Year
  Sex: Female

DRUGS (1)
  1. IBRANCE [Suspect]
     Active Substance: PALBOCICLIB
     Indication: BREAST CANCER FEMALE
     Dosage: 125 MG, CYCLIC ((ONCE A DAY) X 21 DAYS)
     Dates: start: 20190517, end: 202101

REACTIONS (8)
  - Weight decreased [Recovering/Resolving]
  - Chills [Recovering/Resolving]
  - Gallbladder disorder [Recovering/Resolving]
  - Diarrhoea [Recovering/Resolving]
  - Back pain [Recovering/Resolving]
  - Eye disorder [Recovering/Resolving]
  - COVID-19 [Not Recovered/Not Resolved]
  - Nausea [Recovering/Resolving]

NARRATIVE: CASE EVENT DATE: 20201229
